FAERS Safety Report 18357395 (Version 1)
Quarter: 2020Q4

REPORT INFORMATION
  Report Type: Report from Study
  Country: IT (occurrence: IT)
  Receive Date: 20201007
  Receipt Date: 20201007
  Transmission Date: 20210114
  Serious: Yes (Death)
  Sender: FDA-Public Use
  Company Number: IT-EXELIXIS-XL18420031707

PATIENT

DRUGS (2)
  1. XL184 [Suspect]
     Active Substance: CABOZANTINIB
     Dosage: 60 MG, QD
     Route: 048
     Dates: start: 20200326
  2. XL184 [Suspect]
     Active Substance: CABOZANTINIB
     Indication: COLORECTAL CANCER METASTATIC
     Dosage: 60 MG
     Dates: end: 20200202

REACTIONS (7)
  - Hypothyroidism [Unknown]
  - Death [Fatal]
  - Mucosal inflammation [Recovered/Resolved]
  - Fatigue [Recovered/Resolved]
  - Decreased appetite [Unknown]
  - Vomiting [Unknown]
  - Diarrhoea [Recovered/Resolved]

NARRATIVE: CASE EVENT DATE: 20191220
